FAERS Safety Report 4408735-1 (Version None)
Quarter: 2004Q3

REPORT INFORMATION
  Report Type: 
  Country: None (occurrence: None)
  Receive Date: 20040727
  Receipt Date: 20040628
  Transmission Date: 20050211
  Serious: Yes (Hospitalization)
  Sender: FDA-Public Use
  Company Number: PHHO2004DK09293

PATIENT
  Age: 44 Year
  Sex: Male

DRUGS (3)
  1. LESCOL [Suspect]
     Indication: RENAL TRANSPLANT
     Dosage: 80 MG, QD
     Route: 048
     Dates: start: 20021213
  2. BRUFEN [Suspect]
  3. COZAAR [Suspect]

REACTIONS (5)
  - AZOTAEMIA [None]
  - BLOOD CREATININE INCREASED [None]
  - BLOOD UREA INCREASED [None]
  - DRUG INTERACTION [None]
  - HYPERKALAEMIA [None]
